FAERS Safety Report 17335177 (Version 1)
Quarter: 2020Q1

REPORT INFORMATION
  Report Type: Spontaneous
  Country: US (occurrence: US)
  Receive Date: 20200128
  Receipt Date: 20200128
  Transmission Date: 20200409
  Serious: No
  Sender: FDA-Public Use
  Company Number: US-BRISTOL-MYERS SQUIBB COMPANY-BMS-2020-005061

PATIENT
  Age: 89 Year
  Sex: Male

DRUGS (3)
  1. ACETAMINOPHEN. [Interacting]
     Active Substance: ACETAMINOPHEN
     Indication: PROPHYLAXIS
     Dosage: 1000 MILLIGRAM, QID
     Route: 065
  2. WARFARIN SODIUM. [Suspect]
     Active Substance: WARFARIN SODIUM
     Indication: ANTICOAGULANT THERAPY
     Dosage: WEEKLY DOSAGE OF 19 MG
     Route: 065
  3. MOXIFLOXACIN. [Interacting]
     Active Substance: MOXIFLOXACIN
     Indication: PROPHYLAXIS
     Dosage: ONE DOSE OF 400MG
     Route: 065

REACTIONS (2)
  - Anticoagulation drug level above therapeutic [Recovering/Resolving]
  - Labelled drug-drug interaction medication error [Unknown]
